FAERS Safety Report 22958779 (Version 2)
Quarter: 2023Q4

REPORT INFORMATION
  Report Type: Spontaneous
  Country: US (occurrence: US)
  Receive Date: 20230919
  Receipt Date: 20231101
  Transmission Date: 20240109
  Serious: Yes (Other)
  Sender: FDA-Public Use
  Company Number: US-BRISTOL-MYERS SQUIBB COMPANY-2023-132496

PATIENT
  Age: 74 Year
  Sex: Female

DRUGS (3)
  1. LENALIDOMIDE [Suspect]
     Active Substance: LENALIDOMIDE
     Indication: Diffuse large B-cell lymphoma
  2. CYCLOPHOSPHAMIDE\PREDNISONE\VINCRISTINE [Suspect]
     Active Substance: CYCLOPHOSPHAMIDE\PREDNISONE\VINCRISTINE
     Indication: Diffuse large B-cell lymphoma
     Dosage: RITUXIMAB 375 MG/M2, CYCLOPHOSPHAMIDE 750 MG/M2, ORAL PREDNISONE 100 MG DAILY FOR 5 DAYS, VINCRISTIN
  3. RITUXIMAB [Suspect]
     Active Substance: RITUXIMAB

REACTIONS (2)
  - Neutropenia [Unknown]
  - Off label use [Unknown]
